FAERS Safety Report 5624437-8 (Version None)
Quarter: 2008Q1

REPORT INFORMATION
  Report Type: 
  Country: None (occurrence: None)
  Receive Date: 20080213
  Receipt Date: 20080129
  Transmission Date: 20080703
  Serious: Yes (Death, Other)
  Sender: FDA-Public Use
  Company Number: GB-AMGEN-UK263689

PATIENT
  Age: 65 Year
  Sex: Female
  Weight: 67.3 kg

DRUGS (8)
  1. NEUPOGEN [Suspect]
     Indication: CHEMOTHERAPY
     Route: 058
  2. CYCLOPHOSPHAMIDE [Suspect]
     Route: 042
  3. AMITRIPTYLINE HCL [Concomitant]
     Route: 065
  4. CODEINE SUL TAB [Concomitant]
     Route: 065
  5. EPIRUBICIN [Concomitant]
     Route: 042
     Dates: start: 20071005, end: 20071207
  6. FLUOROURACIL [Concomitant]
     Route: 042
     Dates: start: 20071005, end: 20071207
  7. IRON [Concomitant]
     Route: 065
  8. LANSOPRAZOLE [Concomitant]
     Route: 065

REACTIONS (2)
  - ACUTE RESPIRATORY DISTRESS SYNDROME [None]
  - VIRAL INFECTION [None]
